FAERS Safety Report 7984524-6 (Version None)
Quarter: 2011Q4

REPORT INFORMATION
  Report Type: 
  Country: None (occurrence: None)
  Receive Date: 20111216
  Receipt Date: 20111206
  Transmission Date: 20120403
  Serious: Yes (Other)
  Sender: FDA-Public Use
  Company Number: MA-JNJFOC-20111204897

PATIENT
  Sex: Female

DRUGS (1)
  1. REMICADE [Suspect]
     Indication: CROHN'S DISEASE
     Dosage: TOTAL : 1 INJECTION
     Route: 050
     Dates: start: 20100101, end: 20100101

REACTIONS (6)
  - HAEMOLYTIC ANAEMIA [None]
  - THROMBOCYTOPENIA [None]
  - NEUTROPENIA [None]
  - LOSS OF CONSCIOUSNESS [None]
  - INFECTION [None]
  - CYTOLYTIC HEPATITIS [None]
